FAERS Safety Report 10753829 (Version 2)
Quarter: 2015Q1

REPORT INFORMATION
  Report Type: Report from Study
  Country: BR (occurrence: BR)
  Receive Date: 20150202
  Receipt Date: 20150324
  Transmission Date: 20150721
  Serious: Yes (Hospitalization, Other)
  Sender: FDA-Public Use
  Company Number: BR-ROCHE-712021

PATIENT
  Age: 61 Year
  Sex: Female
  Weight: 69 kg

DRUGS (9)
  1. MABTHERA [Suspect]
     Active Substance: RITUXIMAB
     Route: 042
     Dates: start: 20100101, end: 20140411
  2. ARAVA [Suspect]
     Active Substance: LEFLUNOMIDE
     Indication: PRODUCT USED FOR UNKNOWN INDICATION
     Route: 065
  3. TIORFAN [Concomitant]
     Active Substance: RACECADOTRIL
  4. MABTHERA [Suspect]
     Active Substance: RITUXIMAB
     Route: 042
  5. PURAN [Concomitant]
     Active Substance: LEVOTHYROXINE SODIUM
     Route: 065
  6. MABTHERA [Suspect]
     Active Substance: RITUXIMAB
     Indication: RHEUMATOID ARTHRITIS
     Dosage: DOSE: 1000 MG/ML; FORM: INFUSION
     Route: 042
     Dates: start: 200709, end: 200709
  7. MABTHERA [Suspect]
     Active Substance: RITUXIMAB
     Dosage: DOSE: 1000 MG/ML
     Route: 042
     Dates: start: 20100128, end: 20100701
  8. ARADOIS [Concomitant]
     Active Substance: LOSARTAN POTASSIUM
     Route: 065
  9. MABTHERA [Suspect]
     Active Substance: RITUXIMAB
     Dosage: DOSE: 1000 MG/ML
     Route: 042
     Dates: start: 200803, end: 200803

REACTIONS (14)
  - Joint swelling [Not Recovered/Not Resolved]
  - Weight decreased [Unknown]
  - Joint range of motion decreased [Recovered/Resolved]
  - Hypoaesthesia [Not Recovered/Not Resolved]
  - Headache [Not Recovered/Not Resolved]
  - Spinal disorder [Recovered/Resolved]
  - Tuberculosis [Unknown]
  - Bone disorder [Recovering/Resolving]
  - Fall [Unknown]
  - Weight increased [Recovered/Resolved]
  - Osteoarthritis [Recovered/Resolved]
  - Arthralgia [Not Recovered/Not Resolved]
  - Pain [Unknown]
  - Alopecia [Recovering/Resolving]

NARRATIVE: CASE EVENT DATE: 201007
